FAERS Safety Report 5069814-1 (Version None)
Quarter: 2006Q3

REPORT INFORMATION
  Report Type: 
  Country: None (occurrence: None)
  Receive Date: 20060801
  Receipt Date: 20060801
  Transmission Date: 20061208
  Serious: Yes (Hospitalization)
  Sender: FDA-Public Use
  Company Number: None

PATIENT
  Age: 17 Year
  Sex: Female
  Weight: 63 kg

DRUGS (2)
  1. VALPROIC ACID [Suspect]
     Indication: MIGRAINE
     Dosage: 250 MG   Q 6 HOURS   IV
     Route: 042
     Dates: start: 20060506, end: 20060507
  2. TOPAMAX [Suspect]
     Indication: MIGRAINE
     Dosage: 37.5 MG   BID   PO (THERAPY DATES: HOME MED - UNKNOWN)
     Route: 048

REACTIONS (7)
  - AMMONIA INCREASED [None]
  - CONFUSIONAL STATE [None]
  - ENCEPHALOPATHY [None]
  - MENTAL STATUS CHANGES [None]
  - NAUSEA [None]
  - SOMNOLENCE [None]
  - VOMITING [None]
